FAERS Safety Report 4266284-8 (Version None)
Quarter: 2004Q1

REPORT INFORMATION
  Report Type: 
  Country: None (occurrence: None)
  Receive Date: 20040106
  Receipt Date: 20031223
  Transmission Date: 20041129
  Serious: Yes (Hospitalization, Congenital Anomaly)
  Sender: FDA-Public Use
  Company Number: 2003122111

PATIENT
  Age: 0 Day
  Sex: Female
  Weight: 2.4 kg

DRUGS (6)
  1. ATARAX [Suspect]
     Indication: PREMATURE BABY
     Dosage: 75 MG (TID), PLACENTAL
     Route: 064
     Dates: start: 20030901, end: 20031022
  2. SALBUTAMOL SULFATE (SALBUTAMOL SULFATE) [Concomitant]
  3. DIOSMIN (DIOSMIN) [Concomitant]
  4. DYNAMAG (PYRIDOXINE HYDROCHLORIDE, MAGNESIUM LACTATE) [Concomitant]
  5. SPASFON (PHLOROGLUCINOL, TRIMETHYLPHLOROGLUCINOL) [Concomitant]
  6. BETAMETHASONE [Concomitant]
     Route: 064

REACTIONS (7)
  - CAESAREAN SECTION [None]
  - HYPERTONIA NEONATAL [None]
  - HYPOTONIA NEONATAL [None]
  - MATERNAL DRUGS AFFECTING FOETUS [None]
  - PLACENTAL DISORDER [None]
  - SMALL FOR DATES BABY [None]
  - TREMOR NEONATAL [None]
